FAERS Safety Report 21075123 (Version 1)
Quarter: 2022Q3

REPORT INFORMATION
  Report Type: Spontaneous
  Country: CA (occurrence: CA)
  Receive Date: 20220713
  Receipt Date: 20220713
  Transmission Date: 20221026
  Serious: Yes (Other)
  Sender: FDA-Public Use
  Company Number: None

PATIENT
  Age: 45 Year
  Sex: Female

DRUGS (2)
  1. METHOTREXATE [Suspect]
     Active Substance: METHOTREXATE
     Indication: Product used for unknown indication
     Dosage: 1 EVERY 1 WEEKS
  2. INFLIXIMAB [Concomitant]
     Active Substance: INFLIXIMAB
     Indication: Sarcoidosis
     Route: 042

REACTIONS (2)
  - Nerve injury [Unknown]
  - Therapy non-responder [Unknown]
